FAERS Safety Report 21168113 (Version 2)
Quarter: 2022Q3

REPORT INFORMATION
  Report Type: Spontaneous
  Country: US (occurrence: US)
  Receive Date: 20220803
  Receipt Date: 20220926
  Transmission Date: 20221026
  Serious: No
  Sender: FDA-Public Use
  Company Number: US-JNJFOC-20220800896

PATIENT
  Age: 46 Year
  Sex: Female
  Weight: 78.5 kg

DRUGS (7)
  1. OPSUMIT [Suspect]
     Active Substance: MACITENTAN
     Indication: Product used for unknown indication
     Route: 048
  2. REMODULIN [Suspect]
     Active Substance: TREPROSTINIL
     Indication: Pulmonary arterial hypertension
     Route: 058
     Dates: start: 20211210
  3. ADEMPAS [Suspect]
     Active Substance: RIOCIGUAT
     Indication: Product used for unknown indication
     Route: 065
  4. LECITHIN\POLOXAMER 407 [Suspect]
     Active Substance: LECITHIN\POLOXAMER 407
     Indication: Product used for unknown indication
  5. TYLENOL [Suspect]
     Active Substance: ACETAMINOPHEN
     Indication: Product used for unknown indication
  6. BENADRYL [Suspect]
     Active Substance: DIPHENHYDRAMINE HYDROCHLORIDE
     Indication: Product used for unknown indication
  7. TRAMADOL [Suspect]
     Active Substance: TRAMADOL
     Indication: Product used for unknown indication

REACTIONS (17)
  - Infusion site pain [Not Recovered/Not Resolved]
  - Infusion site swelling [Unknown]
  - Device failure [Unknown]
  - COVID-19 [Unknown]
  - Headache [Unknown]
  - Diarrhoea [Unknown]
  - Abdominal discomfort [Unknown]
  - Infusion site haemorrhage [Unknown]
  - Infusion site erythema [Unknown]
  - Abdominal pain [Unknown]
  - Abdominal distension [Unknown]
  - Drug intolerance [Unknown]
  - Nausea [Unknown]
  - Gastrooesophageal reflux disease [Unknown]
  - Therapy non-responder [Unknown]
  - Device maintenance issue [Unknown]
  - Stress [Unknown]

NARRATIVE: CASE EVENT DATE: 20220601
